FAERS Safety Report 25375389 (Version 1)
Quarter: 2025Q2

REPORT INFORMATION
  Report Type: Spontaneous
  Country: US (occurrence: US)
  Receive Date: 20250529
  Receipt Date: 20250529
  Transmission Date: 20250717
  Serious: No
  Sender: BRISTOL-MYERS SQUIBB COMPANY
  Company Number: US-BRISTOL-MYERS SQUIBB COMPANY-2025-077311

PATIENT
  Age: 84 Year
  Sex: Female

DRUGS (4)
  1. ORENCIA [Suspect]
     Active Substance: ABATACEPT
     Indication: Pneumonia pseudomonal
     Route: 058
     Dates: start: 202504
  2. ORENCIA [Suspect]
     Active Substance: ABATACEPT
     Indication: Myalgia
  3. ORENCIA [Suspect]
     Active Substance: ABATACEPT
     Indication: Bronchiectasis
  4. ORENCIA [Suspect]
     Active Substance: ABATACEPT
     Indication: Lower respiratory tract infection

REACTIONS (1)
  - Adverse event [Unknown]
